FAERS Safety Report 9768174 (Version 1)
Quarter: 2013Q4

REPORT INFORMATION
  Report Type: Spontaneous
  Country: MX (occurrence: MX)
  Receive Date: 20131217
  Receipt Date: 20131217
  Transmission Date: 20140711
  Serious: Yes (Disabling, Other)
  Sender: FDA-Public Use
  Company Number: PHHY2013MX147909

PATIENT
  Age: 80 Year
  Sex: Female
  Weight: 79 kg

DRUGS (3)
  1. CO-DIOVAN [Suspect]
     Indication: HYPERTENSION
     Dosage: 1 DF (160/12.5MG), DAILY
     Route: 048
     Dates: end: 201112
  2. CO-DIOVAN [Suspect]
     Dosage: 2 DF (160/12.5MG), DAILY
     Route: 048
     Dates: start: 201112
  3. EXFORGE [Concomitant]
     Indication: HYPERTENSION
     Dosage: 1 DF, DAILY
     Route: 048
     Dates: start: 20131212

REACTIONS (6)
  - Visual impairment [Not Recovered/Not Resolved]
  - Eye ulcer [Recovered/Resolved]
  - Cataract [Recovered/Resolved]
  - Senile dementia [Not Recovered/Not Resolved]
  - Injury corneal [Not Recovered/Not Resolved]
  - Intraocular pressure increased [Recovered/Resolved]
